FAERS Safety Report 20496646 (Version 1)
Quarter: 2022Q1

REPORT INFORMATION
  Report Type: Report from Study
  Country: JP (occurrence: JP)
  Receive Date: 20220221
  Receipt Date: 20220221
  Transmission Date: 20220423
  Serious: Yes (Death)
  Sender: FDA-Public Use
  Company Number: JP-BAUSCH-BL-2017-023861

PATIENT
  Age: 81 Year
  Sex: Female
  Weight: 52 kg

DRUGS (7)
  1. TETRABENAZINE [Suspect]
     Active Substance: TETRABENAZINE
     Indication: Huntington^s disease
     Route: 048
     Dates: start: 20130802, end: 20130808
  2. TETRABENAZINE [Suspect]
     Active Substance: TETRABENAZINE
     Dosage: TETRABENAZINE WAS INCREASED
     Route: 048
     Dates: start: 20130809, end: 20130815
  3. TETRABENAZINE [Suspect]
     Active Substance: TETRABENAZINE
     Dosage: TETRABENAZINE WAS INCREASED
     Route: 048
     Dates: start: 20130816, end: 20130822
  4. TETRABENAZINE [Suspect]
     Active Substance: TETRABENAZINE
     Dosage: TETRABENAZINE WAS INCREASED
     Route: 048
     Dates: start: 20130823, end: 20130919
  5. TETRABENAZINE [Suspect]
     Active Substance: TETRABENAZINE
     Dosage: TETRABENAZINE WAS INCREASED
     Route: 048
     Dates: start: 20130920, end: 20130926
  6. TETRABENAZINE [Suspect]
     Active Substance: TETRABENAZINE
     Dosage: TETRABENAZINE WAS INCREASED
     Route: 048
     Dates: start: 20130927, end: 20170331
  7. HALOPERIDOL [Concomitant]
     Active Substance: HALOPERIDOL
     Indication: Product used for unknown indication
     Route: 048
     Dates: start: 20130401, end: 20130401

REACTIONS (2)
  - Sepsis [Fatal]
  - Myocardial infarction [Fatal]

NARRATIVE: CASE EVENT DATE: 20170101
